FAERS Safety Report 6474212-X (Version None)
Quarter: 2009Q4

REPORT INFORMATION
  Report Type: 
  Country: None (occurrence: None)
  Receive Date: 20091204
  Receipt Date: 20091124
  Transmission Date: 20100525
  Serious: Yes (Other)
  Sender: FDA-Public Use
  Company Number: LB-ELI_LILLY_AND_COMPANY-LB200911006708

PATIENT
  Sex: Female
  Weight: 63 kg

DRUGS (8)
  1. TERIPARATIDE [Suspect]
     Indication: OSTEOPOROSIS
     Dosage: 20 UG, DAILY (1/D)
     Route: 058
     Dates: start: 20080101, end: 20080101
  2. TERIPARATIDE [Suspect]
     Dosage: 20 UG, DAILY (1/D)
     Route: 058
     Dates: start: 20080701, end: 20090301
  3. AMARYL [Concomitant]
     Indication: DIABETES MELLITUS
     Dosage: 1 MG, 2/D
  4. CONCOR [Concomitant]
     Indication: HYPERTENSION
     Dosage: 5 MG, DAILY (1/D)
  5. LESCOL [Concomitant]
     Indication: HYPERLIPIDAEMIA
     Dosage: 80 MG, DAILY (1/D)
  6. OROCAL D(3) [Concomitant]
     Indication: OSTEOPOROSIS
  7. VITAMIN D [Concomitant]
     Indication: OSTEOPOROSIS
     Dosage: 50 IU, WEEKLY (1/W)
  8. LANZOR [Concomitant]

REACTIONS (1)
  - GRANULOMA ANNULARE [None]
